FAERS Safety Report 23958380 (Version 1)
Quarter: 2024Q2

REPORT INFORMATION
  Report Type: Spontaneous
  Country: US (occurrence: US)
  Receive Date: 20240610
  Receipt Date: 20240610
  Transmission Date: 20240716
  Serious: No
  Sender: FDA-Public Use
  Company Number: US-MYLANLABS-2024M1047303

PATIENT
  Sex: Female
  Weight: 50.35 kg

DRUGS (3)
  1. GABAPENTIN [Suspect]
     Active Substance: GABAPENTIN
     Indication: Pain
     Dosage: 100 MILLIGRAM, TID (TAKES THREE CAPSULES THREE TIMES A DAY BY MOUTH)
     Route: 048
     Dates: start: 202212
  2. PANZYGA [Concomitant]
     Active Substance: HUMAN IMMUNOGLOBULIN G
     Indication: Guillain-Barre syndrome
     Dosage: UNK
     Route: 065
  3. FUROSEMIDE [Concomitant]
     Active Substance: FUROSEMIDE
     Indication: Myocardial infarction
     Dosage: 40 MILLIGRAM, QD (TAKES ONCE A DAY BY MOUTH)
     Route: 048
     Dates: start: 201302

REACTIONS (1)
  - Off label use [Unknown]
